FAERS Safety Report 25264113 (Version 1)
Quarter: 2025Q2

REPORT INFORMATION
  Report Type: Spontaneous
  Country: US (occurrence: US)
  Receive Date: 20250502
  Receipt Date: 20250502
  Transmission Date: 20250716
  Serious: No
  Sender: DR REDDYS
  Company Number: US-DRL-USA-USA/2025/04/005994

PATIENT
  Sex: Male

DRUGS (1)
  1. VALSARTAN [Suspect]
     Active Substance: VALSARTAN
     Indication: Hypertension
     Route: 065

REACTIONS (2)
  - Drug ineffective [Unknown]
  - Blood pressure increased [Unknown]
